FAERS Safety Report 9592514 (Version 1)
Quarter: 2013Q4

REPORT INFORMATION
  Report Type: Spontaneous
  Country: FR (occurrence: FR)
  Receive Date: 20131004
  Receipt Date: 20131004
  Transmission Date: 20140711
  Serious: Yes (Hospitalization)
  Sender: FDA-Public Use
  Company Number: FR-ACCORD-019760

PATIENT
  Age: 66 Year
  Sex: Male

DRUGS (2)
  1. GEMCITABINE [Suspect]
     Indication: URETERIC CANCER
     Route: 042
     Dates: start: 20130121, end: 20130404
  2. CARBOPLATIN [Suspect]
     Indication: URETERIC CANCER
     Route: 042
     Dates: start: 20130121, end: 20130404

REACTIONS (3)
  - Pancytopenia [Recovered/Resolved]
  - Generalised oedema [Recovered/Resolved]
  - Off label use [Unknown]
